FAERS Safety Report 15808221 (Version 7)
Quarter: 2019Q3

REPORT INFORMATION
  Report Type: Spontaneous
  Country: CN (occurrence: CN)
  Receive Date: 20190110
  Receipt Date: 20190704
  Transmission Date: 20191004
  Serious: Yes (Life-Threatening, Hospitalization, Other)
  Sender: FDA-Public Use
  Company Number: CN-B.I. PHARMACEUTICALS,INC./RIDGEFIELD-2019-BI-001024

PATIENT
  Age: 68 Year
  Sex: Male
  Weight: 58 kg

DRUGS (3)
  1. PRADAXA [Suspect]
     Active Substance: DABIGATRAN ETEXILATE MESYLATE
     Indication: THROMBOSIS PROPHYLAXIS
     Route: 048
     Dates: start: 20180919, end: 20190103
  2. TACROLIMUS. [Concomitant]
     Active Substance: TACROLIMUS
     Indication: PRODUCT USED FOR UNKNOWN INDICATION
     Route: 048
     Dates: start: 20190104
  3. MYCOPHENOLATE SODIUM [Concomitant]
     Active Substance: MYCOPHENOLATE SODIUM
     Indication: PRODUCT USED FOR UNKNOWN INDICATION
     Dosage: ENTERIC-COATED TABLET
     Route: 048
     Dates: start: 20190114

REACTIONS (5)
  - Cardiac procedure complication [Recovered/Resolved]
  - Cardiac failure chronic [Unknown]
  - Ventricular fibrillation [Recovered/Resolved]
  - Ventricular arrhythmia [Not Recovered/Not Resolved]
  - Ventricular arrhythmia [Not Recovered/Not Resolved]

NARRATIVE: CASE EVENT DATE: 20190522
